FAERS Safety Report 4485303-7 (Version None)
Quarter: 2004Q3

REPORT INFORMATION
  Report Type: 
  Country: None (occurrence: None)
  Receive Date: 20040921
  Receipt Date: 20040512
  Transmission Date: 20050211
  Serious: Yes (Death, Hospitalization)
  Sender: FDA-Public Use
  Company Number: 163-20785-04050319

PATIENT
  Age: 53 Year
  Sex: Female
  Weight: 50.9389 kg

DRUGS (7)
  1. THALOMID [Suspect]
     Indication: MYELOID LEUKAEMIA
     Dosage: 200 MG, DAILY, ORAL; 100 MG, DAILY, ORAL
     Route: 048
     Dates: start: 20040406, end: 20040414
  2. FLUDARABINE PHOSPHATE [Suspect]
     Indication: MYELOID LEUKAEMIA
     Dosage: 27 MG, DAILY TIMES 5 DAYS,  INTRAVENOUS
     Route: 042
     Dates: start: 20040326, end: 20040430
  3. CARBOPLATIN [Suspect]
     Indication: MYELOID LEUKAEMIA
     Dosage: 185 MG, DAILY X 5 DAYS, INTRAVENOUS
     Route: 042
     Dates: start: 20040326, end: 20040430
  4. TOPOTECAN (TOPOTECAN) [Suspect]
     Indication: MYELOID LEUKAEMIA
     Dosage: 1.6 MG, DAILY X 3 DAYS, INTRAVENOUS
     Route: 042
     Dates: start: 20040331, end: 20040403
  5. CYTARABINE [Suspect]
     Indication: ACUTE MYELOID LEUKAEMIA
     Dosage: 5.6 GM, Q 12 HRS FOR 12 DOSES, INTRAVENOUS
     Route: 042
     Dates: start: 20040414
  6. AMPHOTERICIN B [Suspect]
  7. VORICONAZOLE (VORICONAZOLE) [Suspect]

REACTIONS (15)
  - ALANINE AMINOTRANSFERASE INCREASED [None]
  - ASPARTATE AMINOTRANSFERASE INCREASED [None]
  - BLOOD ALKALINE PHOSPHATASE INCREASED [None]
  - DEATH [None]
  - DYSPNOEA [None]
  - HYPOTENSION [None]
  - HYPOXIA [None]
  - LIVER FUNCTION TEST ABNORMAL [None]
  - LUNG INFILTRATION [None]
  - MENTAL STATUS CHANGES [None]
  - NEUTROPHIL COUNT DECREASED [None]
  - PLATELET COUNT DECREASED [None]
  - PULMONARY HAEMORRHAGE [None]
  - RENAL FAILURE [None]
  - WHITE BLOOD CELL COUNT DECREASED [None]
